FAERS Safety Report 5087636-2 (Version None)
Quarter: 2006Q3

REPORT INFORMATION
  Report Type: 
  Country: None (occurrence: None)
  Receive Date: 20060824
  Receipt Date: 20060816
  Transmission Date: 20061208
  Serious: Yes (Hospitalization, Other)
  Sender: FDA-Public Use
  Company Number: JP-JNJFOC-20060700320

PATIENT
  Sex: Female
  Weight: 57 kg

DRUGS (13)
  1. REMICADE [Suspect]
     Route: 042
  2. REMICADE [Suspect]
     Dosage: DOSE NUMBER 4-8 GIVEN ON UNSPECIFIED DATES.
     Route: 042
  3. REMICADE [Suspect]
     Route: 042
  4. REMICADE [Suspect]
     Route: 042
  5. REMICADE [Suspect]
     Indication: RHEUMATOID ARTHRITIS
     Route: 042
  6. METOLATE [Concomitant]
     Indication: RHEUMATOID ARTHRITIS
     Route: 048
  7. ALESION [Concomitant]
     Indication: PREMEDICATION
     Dosage: 1 TAB
     Route: 048
  8. ADRENAL HORMONE PREPARATIONS [Concomitant]
     Indication: RHEUMATOID ARTHRITIS
  9. PREDONINE [Concomitant]
     Indication: RHEUMATOID ARTHRITIS
     Route: 048
  10. RIMATIL [Concomitant]
     Indication: RHEUMATOID ARTHRITIS
     Route: 048
  11. MUCOSTA [Concomitant]
     Indication: RHEUMATOID ARTHRITIS
     Route: 048
  12. DEPAS [Concomitant]
     Route: 048
  13. ALFAROL [Concomitant]
     Route: 048

REACTIONS (7)
  - BACK PAIN [None]
  - CHEST PAIN [None]
  - CHILLS [None]
  - HYPOXIA [None]
  - INFUSION RELATED REACTION [None]
  - NAUSEA [None]
  - VOMITING [None]
